FAERS Safety Report 15180109 (Version 5)
Quarter: 2018Q4

REPORT INFORMATION
  Report Type: Spontaneous
  Country: US (occurrence: US)
  Receive Date: 20180723
  Receipt Date: 20181206
  Transmission Date: 20190204
  Serious: No
  Sender: FDA-Public Use
  Company Number: US-PFIZER INC-2018294281

PATIENT
  Age: 55 Year
  Sex: Female
  Weight: 72 kg

DRUGS (2)
  1. IBRANCE [Suspect]
     Active Substance: PALBOCICLIB
     Indication: BREAST CANCER FEMALE
     Dosage: 125 MG, CYCLIC (D1-21 Q28 DAYS/D1-D21 Q 28D)
     Route: 048
     Dates: start: 201803
  2. IBRANCE [Suspect]
     Active Substance: PALBOCICLIB
     Dosage: 125 MG, CYCLIC (1 QD X3 WEEKS ON, 1 WEEK OF)
     Route: 048
     Dates: start: 20171001, end: 20181015

REACTIONS (13)
  - White blood cell count decreased [Unknown]
  - Pollakiuria [Unknown]
  - Eye pain [Unknown]
  - Dyspnoea [Unknown]
  - Alopecia [Unknown]
  - Asthenia [Unknown]
  - Intranasal hypoaesthesia [Not Recovered/Not Resolved]
  - Hypoaesthesia [Not Recovered/Not Resolved]
  - Hypoaesthesia teeth [Not Recovered/Not Resolved]
  - Neuralgia [Unknown]
  - Neoplasm progression [Unknown]
  - Cough [Unknown]
  - Headache [Unknown]

NARRATIVE: CASE EVENT DATE: 2018
